FAERS Safety Report 10793840 (Version 1)
Quarter: 2015Q1

REPORT INFORMATION
  Report Type: Spontaneous
  Country: IT (occurrence: IT)
  Receive Date: 20150213
  Receipt Date: 20150213
  Transmission Date: 20150721
  Serious: Yes (Death, Hospitalization)
  Sender: FDA-Public Use
  Company Number: IT-BAYER-2015-021732

PATIENT
  Age: 92 Year
  Sex: Female

DRUGS (6)
  1. SOTALOL. [Concomitant]
     Active Substance: SOTALOL
  2. TAVOR [LORAZEPAM] [Concomitant]
     Active Substance: LORAZEPAM
     Dosage: UNK, UNK
  3. CARDIOASPIRIN [Suspect]
     Active Substance: ASPIRIN
     Indication: PROPHYLAXIS
     Dosage: 100 MG, DAILY DOSE
     Route: 048
     Dates: start: 20100101, end: 20150113
  4. LATANOPROST. [Concomitant]
     Active Substance: LATANOPROST
     Dosage: UNK
  5. KARVEA [Concomitant]
     Active Substance: IRBESARTAN
  6. SERTRALINE [Concomitant]
     Active Substance: SERTRALINE HYDROCHLORIDE

REACTIONS (1)
  - Cerebral haemorrhage [Fatal]

NARRATIVE: CASE EVENT DATE: 20150113
